FAERS Safety Report 7979227-8 (Version None)
Quarter: 2011Q4

REPORT INFORMATION
  Report Type: 
  Country: None (occurrence: None)
  Receive Date: 20111214
  Receipt Date: 20111209
  Transmission Date: 20120403
  Serious: Yes (Life-Threatening)
  Sender: FDA-Public Use
  Company Number: GB-JNJFOC-20111204385

PATIENT
  Age: 29 Year
  Sex: Male
  Weight: 45 kg

DRUGS (5)
  1. ACETAMINOPHEN [Concomitant]
     Route: 065
     Dates: start: 20111116, end: 20111121
  2. AMOXICILLIN [Concomitant]
     Route: 065
     Dates: start: 20111110, end: 20111117
  3. OLANZAPINE [Concomitant]
     Route: 065
     Dates: start: 20110905, end: 20110905
  4. METHADONE HCL [Concomitant]
     Route: 065
     Dates: start: 20111108
  5. ACETAMINOPHEN W/ CODEINE [Suspect]
     Indication: PRODUCT USED FOR UNKNOWN INDICATION
     Route: 065
     Dates: start: 20111129

REACTIONS (1)
  - THYROID CANCER [None]
